FAERS Safety Report 6106585-1 (Version None)
Quarter: 2009Q1

REPORT INFORMATION
  Report Type: 
  Country: None (occurrence: None)
  Receive Date: 20090304
  Receipt Date: 20090227
  Transmission Date: 20090719
  Serious: Yes (Life-Threatening)
  Sender: FDA-Public Use
  Company Number: 2008SP01724

PATIENT
  Age: 67 Year
  Sex: Female
  Weight: 42 kg

DRUGS (15)
  1. NITRO-DUR [Suspect]
     Indication: ANGINA PECTORIS
     Dosage: 4.8 MG;QD;TDER
     Route: 062
     Dates: start: 20071113, end: 20071126
  2. METOPROLOL TARTRATE [Concomitant]
  3. CLOPIDOGREL [Concomitant]
  4. CALCITRIOL [Concomitant]
  5. IRBESARTAN [Concomitant]
  6. ACTONEL [Concomitant]
  7. LACTULOSE [Concomitant]
  8. LORAZEPAM [Concomitant]
  9. CITALOPRAM HYDROBROMIDE [Concomitant]
  10. CODEINE [Concomitant]
  11. LIPITOR [Concomitant]
  12. REPLATIVE (B VITAMINS, VITAMIN C, FOLATE, NICOTINAMIDE, CALCIUM) [Concomitant]
  13. FUROSEMIDE [Concomitant]
  14. CALCIUM CARBONATE [Concomitant]
  15. ERYTHROPOETIN [Concomitant]

REACTIONS (1)
  - THROMBOCYTOPENIA [None]
